FAERS Safety Report 25168232 (Version 3)
Quarter: 2025Q2

REPORT INFORMATION
  Report Type: Report from Study
  Country: US (occurrence: US)
  Receive Date: 20250407
  Receipt Date: 20250620
  Transmission Date: 20250716
  Serious: Yes (Hospitalization, Other)
  Sender: UCB
  Company Number: US-UCBSA-2025019461

PATIENT
  Sex: Male

DRUGS (2)
  1. ROZANOLIXIZUMAB [Suspect]
     Active Substance: ROZANOLIXIZUMAB
     Indication: Myasthenia gravis
     Dosage: UNK, WEEKLY (QW), FOR 6 WEEK
     Route: 058
     Dates: start: 202412
  2. ROZANOLIXIZUMAB [Suspect]
     Active Substance: ROZANOLIXIZUMAB
     Dosage: 4 WEEK TREATMENT FOLLOWED BY 4 WEEK BREAK
     Route: 058

REACTIONS (3)
  - Myasthenia gravis [Not Recovered/Not Resolved]
  - Therapy interrupted [Unknown]
  - Therapeutic response shortened [Unknown]
